FAERS Safety Report 6625777-6 (Version None)
Quarter: 2010Q1

REPORT INFORMATION
  Report Type: 
  Country: None (occurrence: None)
  Receive Date: 20100310
  Receipt Date: 20100308
  Transmission Date: 20100710
  Serious: Yes (Hospitalization)
  Sender: FDA-Public Use
  Company Number: CN-BAYER-201011074GPV

PATIENT
  Age: 55 Year
  Sex: Male
  Weight: 77 kg

DRUGS (3)
  1. SORAFENIB [Suspect]
     Indication: HEPATIC NEOPLASM MALIGNANT
     Dosage: TOTAL DAILY DOSE: 800 MG
     Route: 048
     Dates: start: 20091224, end: 20091229
  2. HUMULIN 70/30 [Concomitant]
     Indication: DIABETES MELLITUS
     Dates: start: 20100126
  3. FOLIUM SENNAE [Concomitant]
     Indication: CONSTIPATION
     Route: 048
     Dates: start: 20100128, end: 20100128

REACTIONS (1)
  - NEPHROTIC SYNDROME [None]
